FAERS Safety Report 17809463 (Version 2)
Quarter: 2020Q2

REPORT INFORMATION
  Report Type: Spontaneous
  Country: FR (occurrence: FR)
  Receive Date: 20200521
  Receipt Date: 20200603
  Transmission Date: 20200714
  Serious: Yes (Life-Threatening, Hospitalization, Other)
  Sender: FDA-Public Use
  Company Number: FR-AUROBINDO-AUR-APL-2020-024988

PATIENT
  Age: 46 Year
  Sex: Female
  Weight: 115 kg

DRUGS (1)
  1. GABAPENTIN ARROW [Suspect]
     Active Substance: GABAPENTIN
     Indication: BIPOLAR DISORDER
     Dosage: 800 MILLIGRAM
     Route: 048
     Dates: start: 20200406, end: 20200427

REACTIONS (1)
  - Suicide attempt [Recovered/Resolved]

NARRATIVE: CASE EVENT DATE: 20200412
